FAERS Safety Report 7421506-7 (Version None)
Quarter: 2011Q2

REPORT INFORMATION
  Report Type: 
  Country: None (occurrence: None)
  Receive Date: 20110418
  Receipt Date: 20110407
  Transmission Date: 20111010
  Serious: Yes (Other)
  Sender: FDA-Public Use
  Company Number: US-ASTRAZENECA-2009UW13842

PATIENT
  Age: 86 Year
  Sex: Female
  Weight: 81.6 kg

DRUGS (8)
  1. MUCINEX [Concomitant]
  2. NEXIUM [Suspect]
     Route: 048
  3. LEXAPRO [Concomitant]
  4. PLAVIX [Concomitant]
  5. AVALIDE [Concomitant]
  6. NORVASC [Concomitant]
  7. LIPITOR [Concomitant]
  8. XANAX [Concomitant]

REACTIONS (3)
  - ARTHRITIS [None]
  - CORONARY ARTERY DISEASE [None]
  - MALAISE [None]
